FAERS Safety Report 9030983 (Version 5)
Quarter: 2013Q2

REPORT INFORMATION
  Report Type: Spontaneous
  Country: US (occurrence: US)
  Receive Date: 20130123
  Receipt Date: 20130524
  Transmission Date: 20140414
  Serious: Yes (Hospitalization, Other)
  Sender: FDA-Public Use
  Company Number: US-ROCHE-718633

PATIENT
  Age: 25 Year
  Sex: Male
  Weight: 54.4 kg

DRUGS (3)
  1. ACCUTANE [Suspect]
     Indication: ACNE
     Route: 065
     Dates: start: 199207, end: 199301
  2. TYLENOL [Concomitant]
  3. AMOXICILLIN [Concomitant]

REACTIONS (5)
  - Colitis ulcerative [Unknown]
  - Small intestinal obstruction [Unknown]
  - Gastrointestinal injury [Unknown]
  - Inflammatory bowel disease [Unknown]
  - Rectal polyp [Unknown]
